FAERS Safety Report 8310779-4 (Version None)
Quarter: 2012Q2

REPORT INFORMATION
  Report Type: 
  Country: None (occurrence: None)
  Receive Date: 20120425
  Receipt Date: 20120417
  Transmission Date: 20120825
  Serious: Yes (Life-Threatening, Hospitalization)
  Sender: FDA-Public Use
  Company Number: JP-COVIDIEN/TYCO HEALTHCARE/MALLINCKRODT-T201200754

PATIENT
  Age: 68 Year
  Sex: Male

DRUGS (8)
  1. BERBERINE CHLORIDE HYDRATE [Concomitant]
     Indication: DIARRHOEA
     Dosage: 2 TAB, TID
     Route: 048
     Dates: start: 20111207
  2. CHINESE HERBAL MEDICINE [Concomitant]
     Indication: DIARRHOEA
     Dosage: 5 G, TID
     Route: 048
     Dates: start: 20110119
  3. BIFIDOBACTERIUM BIFIDUM [Concomitant]
     Indication: DIARRHOEA
     Dosage: 1 TAB, TID
     Route: 048
     Dates: start: 20110119
  4. PYRIDOXAL PHOSPHATE HYDRATE [Concomitant]
     Indication: RASH
     Dosage: 10 MG TAB, TID
     Route: 048
     Dates: start: 20110831
  5. LOPERAMIDE HCL [Concomitant]
     Indication: DIARRHOEA
     Dosage: 2 MG CAP, BID
     Route: 048
     Dates: start: 20110119
  6. DIMETHICONE [Concomitant]
     Indication: DIARRHOEA
     Dosage: 40 MG TAB, TID
     Route: 048
     Dates: start: 20111207
  7. OPTIRAY 160 [Suspect]
     Indication: COMPUTERISED TOMOGRAM
     Dosage: 90 ML, SINGLE
     Route: 042
     Dates: start: 20120217, end: 20120217
  8. FLAVIN ADENINE DINUCLEOTIDE SODIUM [Concomitant]
     Indication: RASH
     Dosage: 5 MG TAB, TID
     Route: 048
     Dates: start: 20110831

REACTIONS (1)
  - ANAPHYLACTIC SHOCK [None]
